FAERS Safety Report 11832530 (Version 1)
Quarter: 2015Q4

REPORT INFORMATION
  Report Type: Spontaneous
  Country: US (occurrence: US)
  Receive Date: 20151214
  Receipt Date: 20151214
  Transmission Date: 20160305
  Serious: No
  Sender: FDA-Public Use
  Company Number: US-PFIZER INC-2015434149

PATIENT
  Age: 57 Year
  Sex: Male

DRUGS (3)
  1. CELEBREX [Suspect]
     Active Substance: CELECOXIB
     Indication: SPONDYLITIS
     Dosage: 200 MG, 2X/DAY
     Route: 048
  2. GABAPENTIN. [Concomitant]
     Active Substance: GABAPENTIN
     Indication: SPINAL PAIN
     Dosage: 300 MG, DAILY
     Route: 048
     Dates: start: 2006
  3. NORCO [Concomitant]
     Active Substance: ACETAMINOPHEN\HYDROCODONE BITARTRATE
     Indication: SPINAL PAIN
     Dosage: [HYDROCODONE BITARTRATE 5]/[PARACETAMOL 325], DAILY
     Dates: start: 201501

REACTIONS (4)
  - Intentional product misuse [Unknown]
  - Spondylitis [Unknown]
  - Condition aggravated [Unknown]
  - Drug dose omission [Unknown]
